FAERS Safety Report 6709233-2 (Version None)
Quarter: 2010Q2

REPORT INFORMATION
  Report Type: 
  Country: None (occurrence: None)
  Receive Date: 20100504
  Receipt Date: 20100427
  Transmission Date: 20101027
  Serious: Yes (Death, Hospitalization, Other)
  Sender: FDA-Public Use
  Company Number: US-SANOFI-AVENTIS-2010SA025297

PATIENT
  Age: 75 Year
  Sex: Female
  Weight: 54.42 kg

DRUGS (11)
  1. PLAVIX [Suspect]
     Route: 048
     Dates: start: 20000101, end: 20100101
  2. FEMARA [Concomitant]
     Dates: start: 20050101, end: 20100101
  3. ENALAPRIL [Concomitant]
     Route: 048
     Dates: end: 20100101
  4. ASPIRIN [Concomitant]
     Dates: start: 20000101, end: 20100101
  5. XANAX [Concomitant]
     Dates: end: 20100101
  6. METOPROLOL [Concomitant]
     Dates: end: 20100101
  7. ZOCOR [Concomitant]
     Dates: end: 20100101
  8. DARVOCET-N 100 [Concomitant]
     Dates: end: 20100101
  9. ZOMETA [Concomitant]
     Dates: start: 20050101, end: 20100101
  10. VITAMIN B-12 [Concomitant]
     Dates: start: 20050101, end: 20100101
  11. INSULIN PEN NOS [Concomitant]
     Dates: start: 19700101, end: 20100101

REACTIONS (4)
  - BREAST CANCER [None]
  - DYSPNOEA [None]
  - MYOCARDIAL INFARCTION [None]
  - PERIPHERAL ARTERIAL OCCLUSIVE DISEASE [None]
